FAERS Safety Report 21969182 (Version 13)
Quarter: 2023Q4

REPORT INFORMATION
  Report Type: Spontaneous
  Country: US (occurrence: US)
  Receive Date: 20230208
  Receipt Date: 20231031
  Transmission Date: 20240110
  Serious: No
  Sender: FDA-Public Use
  Company Number: US-BIOGEN-2023BI01186100

PATIENT
  Age: 73 Year
  Sex: Female

DRUGS (1)
  1. TYSABRI [Suspect]
     Active Substance: NATALIZUMAB
     Indication: Multiple sclerosis
     Dosage: INFUSED OVER 1 HOUR
     Route: 050
     Dates: start: 20220303, end: 20230209

REACTIONS (7)
  - Product dose omission issue [Unknown]
  - Buttock injury [Not Recovered/Not Resolved]
  - Infection [Not Recovered/Not Resolved]
  - Decubitus ulcer [Unknown]
  - Multiple sclerosis [Unknown]
  - COVID-19 [Unknown]
  - Limb injury [Recovered/Resolved]

NARRATIVE: CASE EVENT DATE: 20220901
